FAERS Safety Report 5456802-6 (Version None)
Quarter: 2007Q3

REPORT INFORMATION
  Report Type: 
  Country: None (occurrence: None)
  Receive Date: 20070918
  Receipt Date: 20070228
  Transmission Date: 20080115
  Serious: Yes (Hospitalization)
  Sender: FDA-Public Use
  Company Number: US-ASTRAZENECA-2006UW26146

PATIENT
  Sex: Male

DRUGS (4)
  1. SEROQUEL [Suspect]
     Indication: PSYCHOTIC DISORDER
     Dosage: 200 MG-300 MG
     Route: 048
     Dates: start: 20030101, end: 20050101
  2. ABILIFY [Concomitant]
  3. GEODON [Concomitant]
  4. ZYPREXA [Concomitant]

REACTIONS (1)
  - TYPE 2 DIABETES MELLITUS [None]
